FAERS Safety Report 5770353-0 (Version None)
Quarter: 2008Q2

REPORT INFORMATION
  Report Type: 
  Country: None (occurrence: None)
  Receive Date: 20080613
  Receipt Date: 20080515
  Transmission Date: 20081010
  Serious: No
  Sender: FDA-Public Use
  Company Number: US-ABBOTT-08P-163-0449231-00

PATIENT
  Age: 32 Year
  Sex: Male
  Weight: 70 kg

DRUGS (13)
  1. HUMIRA [Suspect]
     Indication: PSORIATIC ARTHROPATHY
     Route: 058
     Dates: start: 20051001, end: 20061001
  2. HUMIRA [Interacting]
     Indication: PSORIASIS
     Dates: start: 20061101, end: 20070201
  3. HUMIRA [Interacting]
     Dates: start: 20070401, end: 20070801
  4. HYDROCHLOROTHIAZIDE [Concomitant]
     Indication: BLOOD PRESSURE
     Route: 048
     Dates: end: 20071101
  5. METHOTREXATE [Concomitant]
     Indication: PSORIATIC ARTHROPATHY
     Dosage: 10-15 MG PER WEEK
     Route: 048
     Dates: start: 20060701, end: 20060901
  6. METHOTREXATE [Concomitant]
     Indication: PSORIASIS
  7. LISINOPRIL [Concomitant]
     Indication: BLOOD PRESSURE
     Route: 048
     Dates: start: 20071101
  8. FOLIC ACID [Concomitant]
     Indication: DRUG USE FOR UNKNOWN INDICATION
     Route: 048
     Dates: start: 20060701, end: 20060901
  9. IBUROFEN [Concomitant]
     Indication: ANTIINFLAMMATORY THERAPY
     Route: 048
  10. DICLOFENAC [Concomitant]
     Indication: ANTIINFLAMMATORY THERAPY
     Dosage: BID PRN
  11. LEFLUNOMIDE [Concomitant]
     Indication: PSORIATIC ARTHROPATHY
     Route: 048
     Dates: start: 20060101, end: 20060701
  12. LEFLUNOMIDE [Concomitant]
     Indication: PSORIASIS
     Route: 048
     Dates: start: 20070101, end: 20070101
  13. PREDNISONE TAB [Concomitant]
     Indication: PSORIATIC ARTHROPATHY
     Route: 048
     Dates: start: 20060101, end: 20060701

REACTIONS (2)
  - NEPHROLITHIASIS [None]
  - PSORIATIC ARTHROPATHY [None]
